FAERS Safety Report 6890660-8 (Version None)
Quarter: 2010Q3

REPORT INFORMATION
  Report Type: 
  Country: None (occurrence: None)
  Receive Date: 20100731
  Receipt Date: 20090204
  Transmission Date: 20110219
  Serious: Yes (Hospitalization)
  Sender: FDA-Public Use
  Company Number: GR-PFIZER INC-2009165680

PATIENT
  Age: 60 Year
  Sex: Female

DRUGS (6)
  1. VIBRAMYCIN [Suspect]
     Dosage: FREQUENCY: PRN,
     Route: 048
  2. IDEOS [Concomitant]
     Route: 048
  3. FOSAMAX [Concomitant]
     Route: 048
  4. MEDROL [Concomitant]
     Route: 048
  5. MODURETIC 5-50 [Concomitant]
     Route: 048
  6. SERETIDE [Concomitant]

REACTIONS (1)
  - ANGIOEDEMA [None]
